FAERS Safety Report 10229562 (Version 2)
Quarter: 2014Q2

REPORT INFORMATION
  Report Type: Spontaneous
  Country: JP (occurrence: JP)
  Receive Date: 20140611
  Receipt Date: 20140611
  Transmission Date: 20141212
  Serious: Yes (Hospitalization)
  Sender: FDA-Public Use
  Company Number: JP-AMGEN-JPNSP2014040687

PATIENT
  Age: 38 Year
  Sex: Female
  Weight: 42 kg

DRUGS (11)
  1. PRALIA [Suspect]
     Indication: OSTEOPOROSIS
     Dosage: UNK
     Route: 058
     Dates: start: 201311
  2. PRIMOBOLAN                         /00044803/ [Concomitant]
     Indication: PLATELET COUNT DECREASED
     Dosage: 5 MG, TID
     Route: 048
     Dates: start: 20140403
  3. AMLODIN [Concomitant]
     Indication: HYPERTENSION
     Dosage: 10 MG, QD
     Route: 048
  4. NEXIUM                             /01479302/ [Concomitant]
     Indication: GASTRITIS
     Dosage: 20 MG, QD
     Route: 048
  5. HALIZON [Concomitant]
     Indication: PROPHYLAXIS
     Dosage: 100 MG, QID
     Route: 048
     Dates: start: 20140313
  6. LASIX                              /00032601/ [Concomitant]
     Indication: RENAL FAILURE CHRONIC
     Dosage: 100 MG, BID
     Route: 048
     Dates: start: 20140308
  7. PREDONINE                          /00016201/ [Concomitant]
     Indication: SYSTEMIC LUPUS ERYTHEMATOSUS
     Dosage: 15 MG, QD
     Route: 048
  8. ONEALFA [Concomitant]
     Indication: OSTEOPOROSIS
     Dosage: 0.5 MUG, QD
     Route: 048
     Dates: start: 20140508
  9. ALFAROL [Concomitant]
     Dosage: 0.25 MUG, QD
     Dates: start: 20140508
  10. ASPARA-CA [Concomitant]
     Dosage: 1200 MG, QD
     Dates: start: 20140524
  11. CALCICOL [Concomitant]
     Route: 042

REACTIONS (1)
  - Hypocalcaemia [Recovering/Resolving]
